FAERS Safety Report 12458164 (Version 1)
Quarter: 2016Q2

REPORT INFORMATION
  Report Type: Spontaneous
  Country: US (occurrence: US)
  Receive Date: 20160613
  Receipt Date: 20160613
  Transmission Date: 20160815
  Serious: No
  Sender: FDA-Public Use
  Company Number: US-TEVA-656715USA

PATIENT
  Sex: Female
  Weight: 55.84 kg

DRUGS (2)
  1. DULOXETINE. [Suspect]
     Active Substance: DULOXETINE
     Indication: NEURALGIA
  2. DULOXETINE. [Suspect]
     Active Substance: DULOXETINE
     Indication: AUTOIMMUNE DISORDER
     Route: 065

REACTIONS (2)
  - Diarrhoea [Unknown]
  - Product use issue [Unknown]
